FAERS Safety Report 19981417 (Version 1)
Quarter: 2021Q4

REPORT INFORMATION
  Report Type: Spontaneous
  Country: RU (occurrence: RU)
  Receive Date: 20211021
  Receipt Date: 20211021
  Transmission Date: 20220303
  Serious: Yes (Other)
  Sender: FDA-Public Use
  Company Number: RU-SEPTODONT-2021006586

PATIENT
  Age: 66 Year
  Sex: Female

DRUGS (1)
  1. SCANDONEST PLAIN [Suspect]
     Active Substance: MEPIVACAINE HYDROCHLORIDE
     Route: 004
     Dates: start: 20000601

REACTIONS (4)
  - Asthenia [Unknown]
  - Dry mouth [Unknown]
  - Oropharyngeal pain [Unknown]
  - Palpitations [Unknown]

NARRATIVE: CASE EVENT DATE: 20000601
